FAERS Safety Report 25488206 (Version 6)
Quarter: 2025Q3

REPORT INFORMATION
  Report Type: Spontaneous
  Country: CO (occurrence: CO)
  Receive Date: 20250627
  Receipt Date: 20250918
  Transmission Date: 20251020
  Serious: No
  Sender: PFIZER
  Company Number: CO-PFIZER INC-202500125999

PATIENT
  Age: 13 Year
  Sex: Male

DRUGS (1)
  1. GENOTROPIN [Suspect]
     Active Substance: SOMATROPIN
     Indication: Growth disorder
     Dosage: 1.2 MG, DAILY
     Dates: start: 20250620, end: 2025

REACTIONS (2)
  - Device delivery system issue [Recovered/Resolved]
  - Drug dose omission by device [Unknown]

NARRATIVE: CASE EVENT DATE: 20250101
